FAERS Safety Report 5116903-9 (Version None)
Quarter: 2006Q3

REPORT INFORMATION
  Report Type: 
  Country: None (occurrence: None)
  Receive Date: 20060925
  Receipt Date: 20060914
  Transmission Date: 20061208
  Serious: Yes (Death)
  Sender: FDA-Public Use
  Company Number: B0438665A

PATIENT

DRUGS (2)
  1. ALKERAN [Suspect]
     Indication: T-CELL LYMPHOMA
  2. CANCER CHEMOTHERAPY (CANCER CHEMOTHERAPY) [Suspect]

REACTIONS (1)
  - CEREBROVASCULAR ACCIDENT [None]
